FAERS Safety Report 20764187 (Version 9)
Quarter: 2022Q4

REPORT INFORMATION
  Report Type: Spontaneous
  Country: US (occurrence: US)
  Receive Date: 20220428
  Receipt Date: 20221122
  Transmission Date: 20230113
  Serious: No
  Sender: FDA-Public Use
  Company Number: US-PFIZER INC-202200465089

PATIENT
  Age: 78 Year
  Sex: Female

DRUGS (2)
  1. IBRANCE [Suspect]
     Active Substance: PALBOCICLIB
     Indication: Breast cancer female
     Dosage: 125 MG, CYCLIC (1 TABLET EVERY DAY FOR 21 DAYS, THEN OFF FOR 7 DAYS EVERY 28 DAY CYCLE)
     Route: 048
     Dates: start: 20211210
  2. VERZENIO [Concomitant]
     Active Substance: ABEMACICLIB
     Dosage: 150 MG

REACTIONS (12)
  - Fatigue [Unknown]
  - Alopecia [Unknown]
  - Weight decreased [Unknown]
  - Nausea [Unknown]
  - Decreased appetite [Unknown]
  - Red blood cell count decreased [Unknown]
  - White blood cell count decreased [Unknown]
  - Insomnia [Unknown]
  - Stomatitis [Unknown]
  - Diarrhoea [Unknown]
  - Oral pain [Unknown]
  - Constipation [Recovering/Resolving]
